FAERS Safety Report 9391323 (Version 1)
Quarter: 2013Q3

REPORT INFORMATION
  Report Type: Spontaneous
  Country: GB (occurrence: GB)
  Receive Date: 20130709
  Receipt Date: 20130709
  Transmission Date: 20140515
  Serious: Yes (Other)
  Sender: FDA-Public Use
  Company Number: GB-TEVA-416491ISR

PATIENT
  Age: 54 Year
  Sex: Female
  Weight: 50 kg

DRUGS (1)
  1. METRONIDAZOLE [Suspect]
     Indication: TOOTH EXTRACTION
     Dosage: 600 MILLIGRAM DAILY;
     Route: 048
     Dates: start: 20130610, end: 20130611

REACTIONS (1)
  - Somnolence [Recovered/Resolved]
